FAERS Safety Report 24254418 (Version 1)
Quarter: 2024Q3

REPORT INFORMATION
  Report Type: Spontaneous
  Country: US (occurrence: None)
  Receive Date: 20240826
  Receipt Date: 20240826
  Transmission Date: 20241017
  Serious: Yes (Disabling)
  Sender: Public
  Company Number: None

PATIENT
  Age: 64 Year
  Sex: Female
  Weight: 54 kg

DRUGS (1)
  1. GILENYA [Suspect]
     Active Substance: FINGOLIMOD HYDROCHLORIDE
     Dosage: FREQUENCY : DAILY;?
     Route: 048

REACTIONS (6)
  - Peroneal nerve palsy [None]
  - Hypoaesthesia [None]
  - Balance disorder [None]
  - Dizziness [None]
  - Gait disturbance [None]
  - Multiple sclerosis [None]

NARRATIVE: CASE EVENT DATE: 20230831
